FAERS Safety Report 20513171 (Version 2)
Quarter: 2024Q1

REPORT INFORMATION
  Report Type: Spontaneous
  Country: US (occurrence: US)
  Receive Date: 20220224
  Receipt Date: 20240226
  Transmission Date: 20240410
  Serious: No
  Sender: FDA-Public Use
  Company Number: US-AMNEAL PHARMACEUTICALS-2021-AMRX-01411

PATIENT
  Sex: Female

DRUGS (5)
  1. RYTARY [Suspect]
     Active Substance: CARBIDOPA\LEVODOPA
     Indication: Parkinson^s disease
     Dosage: 3 CAPSULES, TID
     Route: 048
  2. RYTARY [Suspect]
     Active Substance: CARBIDOPA\LEVODOPA
     Dosage: 23.75/95 MG,13 CAPSULES, DAILY (4 CAPS IN MORNING AND 3 CAPS 3 TIMES DAILY)
     Route: 048
     Dates: start: 20211117, end: 20220111
  3. RYTARY [Suspect]
     Active Substance: CARBIDOPA\LEVODOPA
     Dosage: 23. 75/95 MG TAKE 4 CAPSULES BY MOUTH IN TIIE MORNING (7AM) AND TA KE 3 CAPSULES TWICE A DAY (12PM A
     Route: 048
     Dates: start: 20220808
  4. RYTARY [Suspect]
     Active Substance: CARBIDOPA\LEVODOPA
     Dosage: 23.75MG-95MG,4CAPSULES BYMOUTH IN THE MORNING (AT 7AM), THEN TAKE 3 CAPSULES THREE TIMES ADAY (11AM.
     Route: 048
  5. RYTARY [Suspect]
     Active Substance: CARBIDOPA\LEVODOPA
     Dosage: 23.75MG-95MG, 4 CAPSULES BY MOUTH IN THE MORNING AND THEN 3 CAPSULES BY MOUTH 3 TIMES A DAY
     Dates: start: 20230109

REACTIONS (1)
  - Therapeutic response shortened [Unknown]
